FAERS Safety Report 9815221 (Version 4)
Quarter: 2014Q2

REPORT INFORMATION
  Report Type: Report from Study
  Country: AU (occurrence: AU)
  Receive Date: 20140114
  Receipt Date: 20140605
  Transmission Date: 20141212
  Serious: Yes (Hospitalization)
  Sender: FDA-Public Use
  Company Number: AU-BIOGENIDEC-2013BI112002

PATIENT
  Sex: Female

DRUGS (5)
  1. TECFIDERA [Suspect]
     Indication: MULTIPLE SCLEROSIS
     Route: 048
     Dates: start: 20131112
  2. TECFIDERA [Suspect]
     Indication: MULTIPLE SCLEROSIS
     Route: 048
     Dates: start: 20131112
  3. TECFIDERA [Suspect]
     Indication: MULTIPLE SCLEROSIS
     Route: 048
     Dates: start: 20131121
  4. TECFIDERA [Suspect]
     Indication: MULTIPLE SCLEROSIS
     Route: 048
  5. TECFIDERA [Suspect]
     Indication: MULTIPLE SCLEROSIS
     Route: 048
     Dates: end: 201404

REACTIONS (27)
  - Muscle spasms [Unknown]
  - Hypoaesthesia [Unknown]
  - Headache [Unknown]
  - Pharyngeal oedema [Not Recovered/Not Resolved]
  - Prescribed underdose [Not Recovered/Not Resolved]
  - Respiratory fume inhalation disorder [Unknown]
  - Cough [Unknown]
  - Glossodynia [Unknown]
  - Throat irritation [Unknown]
  - Fatigue [Unknown]
  - Lip pain [Unknown]
  - Oropharyngeal pain [Unknown]
  - Paraesthesia [Unknown]
  - Alopecia [Unknown]
  - Haematuria [Unknown]
  - Burning sensation [Unknown]
  - Flushing [Not Recovered/Not Resolved]
  - Rash [Unknown]
  - Pruritus [Unknown]
  - Nausea [Recovered/Resolved]
  - Vomiting [Unknown]
  - Abdominal pain [Unknown]
  - Diarrhoea [Unknown]
  - Faecal incontinence [Unknown]
  - Urinary incontinence [Unknown]
  - Lower respiratory tract infection [Unknown]
  - Dermatitis bullous [Unknown]
